FAERS Safety Report 15732991 (Version 1)
Quarter: 2018Q4

REPORT INFORMATION
  Report Type: Report from Study
  Country: None (occurrence: US)
  Receive Date: 20181218
  Receipt Date: 20181218
  Transmission Date: 20190205
  Serious: Yes (Hospitalization)
  Sender: FDA-Public Use
  Company Number: US-ABBVIE-18K-163-2589984-00

PATIENT
  Age: 43 Year
  Sex: Female

DRUGS (1)
  1. HUMIRA [Suspect]
     Active Substance: ADALIMUMAB
     Indication: PSORIASIS
     Route: 058

REACTIONS (8)
  - Device related sepsis [Recovering/Resolving]
  - Device related infection [Recovering/Resolving]
  - Muscular weakness [Recovering/Resolving]
  - Lethargy [Unknown]
  - Pyrexia [Recovering/Resolving]
  - Fall [Recovering/Resolving]
  - Medical device site discharge [Recovering/Resolving]
  - Erythema [Recovering/Resolving]

NARRATIVE: CASE EVENT DATE: 201812
